FAERS Safety Report 7799346-9 (Version None)
Quarter: 2011Q4

REPORT INFORMATION
  Report Type: 
  Country: None (occurrence: None)
  Receive Date: 20111006
  Receipt Date: 20110926
  Transmission Date: 20120403
  Serious: Yes (Hospitalization)
  Sender: FDA-Public Use
  Company Number: MX-SANOFI-AVENTIS-2011SA044521

PATIENT
  Age: 85 Year
  Sex: Male
  Weight: 74 kg

DRUGS (7)
  1. PROPRANOLOL [Concomitant]
  2. PRAZOSIN HCL [Concomitant]
  3. ENALAPRIL MALEATE [Concomitant]
  4. DRONEDARONE HCL [Suspect]
     Indication: ATRIAL FIBRILLATION
     Route: 048
     Dates: start: 20110214
  5. FUROSEMIDE [Concomitant]
  6. SINTROM [Concomitant]
  7. DIGOXIN [Concomitant]

REACTIONS (1)
  - CARDIAC FAILURE [None]
